FAERS Safety Report 13303970 (Version 1)
Quarter: 2017Q1

REPORT INFORMATION
  Report Type: Spontaneous
  Country: US (occurrence: US)
  Receive Date: 20170307
  Receipt Date: 20170307
  Transmission Date: 20170428
  Serious: Yes (Hospitalization)
  Sender: FDA-Public Use
  Company Number: US-ELI_LILLY_AND_COMPANY-US201608001490

PATIENT

DRUGS (3)
  1. CYMBALTA [Suspect]
     Active Substance: DULOXETINE HYDROCHLORIDE
     Dosage: 30 MG, BID
     Route: 048
     Dates: end: 20131123
  2. CYMBALTA [Suspect]
     Active Substance: DULOXETINE HYDROCHLORIDE
     Dosage: 90 MG, QD
     Route: 048
  3. CYMBALTA [Suspect]
     Active Substance: DULOXETINE HYDROCHLORIDE
     Indication: FIBROMYALGIA
     Dosage: UNK, UNKNOWN
     Route: 048

REACTIONS (14)
  - Anxiety [Unknown]
  - Affect lability [Unknown]
  - Lethargy [Unknown]
  - Agitation [Unknown]
  - Depression [Unknown]
  - Irritability [Unknown]
  - Drug withdrawal syndrome [Unknown]
  - Diarrhoea [Unknown]
  - Dysphoria [Unknown]
  - Vertigo [Unknown]
  - Diabetic coma [Unknown]
  - Confusional state [Unknown]
  - Post-traumatic stress disorder [Unknown]
  - Dizziness [Unknown]
